FAERS Safety Report 23639553 (Version 2)
Quarter: 2024Q1

REPORT INFORMATION
  Report Type: Other
  Country: US (occurrence: None)
  Receive Date: 20240316
  Receipt Date: 20240318
  Transmission Date: 20240410
  Serious: Yes (Hospitalization)
  Sender: FDA-Public Use
  Company Number: US-ROCHE-3527091

PATIENT
  Age: 9 Year
  Sex: Male
  Weight: 12.6 kg

DRUGS (2)
  1. EVRYSDI [Suspect]
     Active Substance: RISDIPLAM
     Indication: Spinal muscular atrophy
     Route: 048
     Dates: start: 20220508
  2. SPINRAZA [Concomitant]
     Active Substance: NUSINERSEN

REACTIONS (6)
  - Pneumonia [Recovering/Resolving]
  - Influenza [Recovering/Resolving]
  - Blood electrolytes decreased [Recovering/Resolving]
  - Rhinorrhoea [Unknown]
  - Pyrexia [Unknown]
  - Hypoxia [Unknown]

NARRATIVE: CASE EVENT DATE: 20240225
